FAERS Safety Report 12855480 (Version 7)
Quarter: 2016Q4

REPORT INFORMATION
  Report Type: Report from Study
  Country: US (occurrence: US)
  Receive Date: 20161017
  Receipt Date: 20161208
  Transmission Date: 20170207
  Serious: Yes (Death)
  Sender: FDA-Public Use
  Company Number: US-SEATTLE GENETICS-2016SGN01608

PATIENT

DRUGS (17)
  1. BRENTUXIMAB VEDOTIN [Suspect]
     Active Substance: BRENTUXIMAB VEDOTIN
     Indication: HODGKIN^S DISEASE NODULAR SCLEROSIS STAGE IV
     Dosage: 1.2 MG/KG, QCYCLE
     Route: 042
     Dates: start: 20160629, end: 20160923
  2. MIRALAX [Concomitant]
     Active Substance: POLYETHYLENE GLYCOL 3350
  3. DACARBAZINE. [Suspect]
     Active Substance: DACARBAZINE
     Indication: HODGKIN^S DISEASE NODULAR SCLEROSIS STAGE IV
     Dosage: 250 MG/M2, QCYCLE
     Route: 042
     Dates: start: 20160824, end: 20160918
  4. PREDNISONE. [Suspect]
     Active Substance: PREDNISONE
     Indication: HODGKIN^S DISEASE NODULAR SCLEROSIS STAGE IV
     Dosage: 60 MG/M2, QCYCLE
     Route: 048
     Dates: start: 20160629, end: 20160930
  5. HEPARIN [Concomitant]
     Active Substance: HEPARIN SODIUM
  6. SEPTRA [Concomitant]
     Active Substance: SULFAMETHOXAZOLE\TRIMETHOPRIM
  7. OLANZAPINE. [Concomitant]
     Active Substance: OLANZAPINE
  8. CYCLOPHOSPHAMIDE. [Suspect]
     Active Substance: CYCLOPHOSPHAMIDE
     Indication: HODGKIN^S DISEASE NODULAR SCLEROSIS STAGE IV
     Dosage: 500 MG/M2, QCYCLE
     Route: 042
     Dates: start: 20160824, end: 20160923
  9. AUGMENTIN [Concomitant]
     Active Substance: AMOXICILLIN\CLAVULANATE POTASSIUM
  10. RANITIDINE. [Concomitant]
     Active Substance: RANITIDINE
  11. PREDNISONE. [Concomitant]
     Active Substance: PREDNISONE
  12. CETIRIZINE [Concomitant]
     Active Substance: CETIRIZINE HYDROCHLORIDE
  13. DOXORUBICIN [Suspect]
     Active Substance: DOXORUBICIN
     Indication: HODGKIN^S DISEASE NODULAR SCLEROSIS STAGE IV
     Dosage: 40 MG/M2, QCYCLE
     Route: 042
     Dates: start: 20160629, end: 20160810
  14. ETOPOSIDE. [Suspect]
     Active Substance: ETOPOSIDE
     Indication: HODGKIN^S DISEASE NODULAR SCLEROSIS STAGE IV
     Dosage: 125 MG/M2, QCYCLE
     Route: 042
     Dates: start: 20160629, end: 20160731
  15. BENADRYL [Concomitant]
     Active Substance: DIPHENHYDRAMINE HYDROCHLORIDE
  16. DOCUSATE PLUS SENNA [Concomitant]
     Active Substance: DOCUSATE SODIUM\SENNOSIDES A AND B
  17. GRANISETRON [Concomitant]
     Active Substance: GRANISETRON

REACTIONS (1)
  - Myocarditis [Fatal]

NARRATIVE: CASE EVENT DATE: 20161013
